FAERS Safety Report 19839550 (Version 1)
Quarter: 2021Q3

REPORT INFORMATION
  Report Type: Spontaneous
  Country: LT (occurrence: LT)
  Receive Date: 20210915
  Receipt Date: 20210915
  Transmission Date: 20211014
  Serious: Yes (Other)
  Sender: FDA-Public Use
  Company Number: LT-FRESENIUS KABI-FK202109851

PATIENT
  Age: 18 Year
  Sex: Female

DRUGS (1)
  1. HEPARIN (MANUFACTURER UNKNOWN) [Suspect]
     Active Substance: HEPARIN SODIUM
     Indication: ANTICOAGULANT THERAPY
     Route: 065

REACTIONS (5)
  - Haematoma infection [Recovered/Resolved]
  - Enterobacter sepsis [Recovered/Resolved]
  - Serratia sepsis [Recovered/Resolved]
  - Catheter site haemorrhage [Recovered/Resolved]
  - Pulmonary haemorrhage [Recovered/Resolved]
